FAERS Safety Report 4465463-4 (Version None)
Quarter: 2004Q4

REPORT INFORMATION
  Report Type: 
  Country: None (occurrence: None)
  Receive Date: 20041004
  Receipt Date: 20040927
  Transmission Date: 20050328
  Serious: Yes (Hospitalization)
  Sender: FDA-Public Use
  Company Number: PHBS2004DK12927

PATIENT
  Age: 49 Year
  Sex: Female
  Weight: 55 kg

DRUGS (6)
  1. LAMISIL [Suspect]
     Indication: NAIL TINEA
     Dosage: 250 MG, QD
     Route: 048
     Dates: start: 20040615, end: 20040806
  2. PREDNISOLONE [Concomitant]
     Dosage: UNK, UNK
     Dates: start: 19850101
  3. PREDNISOLONE [Concomitant]
     Dosage: 30 MG, QD
  4. IMUREL [Concomitant]
     Dates: start: 19850101
  5. IMUREL [Concomitant]
     Dosage: 50 MG, QD
  6. COZAAR [Concomitant]
     Dosage: UNK, UNK
     Route: 048
     Dates: start: 20030301

REACTIONS (6)
  - CUTANEOUS LUPUS ERYTHEMATOSUS [None]
  - ERYTHEMA [None]
  - FOLLICULITIS [None]
  - RASH GENERALISED [None]
  - STAPHYLOCOCCAL INFECTION [None]
  - SYSTEMIC LUPUS ERYTHEMATOSUS RASH [None]
